FAERS Safety Report 11153334 (Version 9)
Quarter: 2016Q1

REPORT INFORMATION
  Report Type: Report from Study
  Country: US (occurrence: US)
  Receive Date: 20150601
  Receipt Date: 20160318
  Transmission Date: 20160525
  Serious: Yes (Death, Hospitalization, Other)
  Sender: FDA-Public Use
  Company Number: US-AMGEN-2014-2152

PATIENT
  Age: 81 Year
  Sex: Male
  Weight: 84.31 kg

DRUGS (6)
  1. KYPROLIS [Suspect]
     Active Substance: CARFILZOMIB
     Indication: PLASMA CELL MYELOMA
     Dosage: UNK
     Route: 042
     Dates: start: 20140916
  2. KYPROLIS [Suspect]
     Active Substance: CARFILZOMIB
     Dosage: 30 MG, D 1,2,8,9,15,16 AND Q 28 DAYS
     Route: 042
     Dates: end: 20150618
  3. DEXAMETHASONE. [Concomitant]
     Active Substance: DEXAMETHASONE
     Indication: PLASMA CELL MYELOMA
     Dosage: UNK
     Route: 065
  4. KYPROLIS [Suspect]
     Active Substance: CARFILZOMIB
     Dosage: UNK
     Route: 065
     Dates: start: 2015
  5. ZOMETA [Concomitant]
     Active Substance: ZOLEDRONIC ACID
     Indication: PLASMA CELL MYELOMA
     Dosage: UNK
     Dates: start: 2015
  6. KYPROLIS [Suspect]
     Active Substance: CARFILZOMIB
     Dosage: UNK
     Route: 065
     Dates: start: 201505

REACTIONS (20)
  - Hernia [Unknown]
  - Insomnia [Not Recovered/Not Resolved]
  - Cough [Not Recovered/Not Resolved]
  - Platelet count decreased [Unknown]
  - Headache [Unknown]
  - Death [Fatal]
  - Haematuria [Recovering/Resolving]
  - Penile pain [Recovered/Resolved]
  - Tremor [Recovered/Resolved]
  - Fatigue [Unknown]
  - Neoplasm malignant [Unknown]
  - Pain [Recovered/Resolved]
  - Fear [Recovered/Resolved]
  - Oropharyngeal pain [Unknown]
  - Bladder cancer [Not Recovered/Not Resolved]
  - Peripheral coldness [Recovered/Resolved]
  - Hypotension [Unknown]
  - Procedural haemorrhage [Unknown]
  - Influenza [Unknown]
  - Therapy responder [Unknown]

NARRATIVE: CASE EVENT DATE: 2014
